FAERS Safety Report 9506550 (Version 2)
Quarter: 2013Q3

REPORT INFORMATION
  Report Type: Spontaneous
  Country: FR (occurrence: FR)
  Receive Date: 20130906
  Receipt Date: 20130906
  Transmission Date: 20140515
  Serious: Yes (Other)
  Sender: FDA-Public Use
  Company Number: PHHY2013FR076622

PATIENT
  Age: 43 Year
  Sex: Male

DRUGS (5)
  1. TRILEPTAL [Suspect]
     Indication: EPILEPSY
     Dosage: 600 MG, UNK
     Dates: start: 1999
  2. TRILEPTAL [Suspect]
     Dosage: 300 MG, UNK
  3. TRILEPTAL [Suspect]
     Dosage: 600 MG, BID
  4. GARDENAL [Suspect]
     Dosage: UNK UKN, UNK
  5. URBANYL [Suspect]
     Dosage: UNK UKN, UNK

REACTIONS (14)
  - Mental disorder [Unknown]
  - Suicidal ideation [Unknown]
  - Eye disorder [Unknown]
  - Dyspepsia [Unknown]
  - Sleep disorder [Unknown]
  - Weight increased [Unknown]
  - Depression [Unknown]
  - Mood altered [Unknown]
  - Nervousness [Unknown]
  - Stress [Unknown]
  - Myalgia [Unknown]
  - Fatigue [Unknown]
  - Disturbance in attention [Unknown]
  - Dizziness [Unknown]
